FAERS Safety Report 6536923-7 (Version None)
Quarter: 2010Q1

REPORT INFORMATION
  Report Type: 
  Country: None (occurrence: None)
  Receive Date: 20100105
  Receipt Date: 20091223
  Transmission Date: 20100710
  Serious: Yes (Hospitalization, Other)
  Sender: FDA-Public Use
  Company Number: JHP200900471

PATIENT
  Age: 31 Year
  Sex: Male

DRUGS (1)
  1. KETALAR [Suspect]
     Indication: BONE PAIN
     Dosage: 130 MG, QID, ORAL; 200 MG, 5X PER DAY, ORAL
     Route: 048

REACTIONS (2)
  - BONE MARROW FAILURE [None]
  - CYSTITIS [None]
